FAERS Safety Report 20909961 (Version 1)
Quarter: 2022Q2

REPORT INFORMATION
  Report Type: Spontaneous
  Country: AU (occurrence: AU)
  Receive Date: 20220603
  Receipt Date: 20220603
  Transmission Date: 20220721
  Serious: Yes (Hospitalization)
  Sender: FDA-Public Use
  Company Number: AU-SUN PHARMACEUTICAL INDUSTRIES LTD-2022RR-339535

PATIENT
  Age: 23 Month
  Sex: Male

DRUGS (5)
  1. IBUPROFEN [Suspect]
     Active Substance: IBUPROFEN
     Indication: Arthropod bite
     Dosage: 10 MILLIGRAM/KILOGRAM
     Route: 065
  2. ACETAMINOPHEN [Suspect]
     Active Substance: ACETAMINOPHEN
     Indication: Arthropod bite
     Dosage: 15 MILLIGRAM/KILOGRAM
     Route: 065
  3. OXYCODONE [Suspect]
     Active Substance: OXYCODONE
     Indication: Arthropod bite
     Dosage: 0.1 MILLIGRAM/KILOGRAM
     Route: 048
  4. FENTANYL [Suspect]
     Active Substance: FENTANYL
     Indication: Arthropod bite
     Dosage: 1.5 MICROGRAM/KILOGRAM
     Route: 045
  5. FENTANYL [Suspect]
     Active Substance: FENTANYL
     Dosage: 1.5 MICROGRAM/KILOGRAM
     Route: 045

REACTIONS (2)
  - Spontaneous penile erection [Unknown]
  - Drug ineffective [Unknown]
